FAERS Safety Report 5212447-4 (Version None)
Quarter: 2007Q1

REPORT INFORMATION
  Report Type: 
  Country: None (occurrence: None)
  Receive Date: 20070118
  Receipt Date: 20061211
  Transmission Date: 20070707
  Serious: Yes (Hospitalization, Other)
  Sender: FDA-Public Use
  Company Number: US-PFIZER INC-2006041446

PATIENT
  Sex: Male
  Weight: 90.7 kg

DRUGS (2)
  1. BEXTRA [Suspect]
     Indication: BACK PAIN
     Route: 048
     Dates: start: 20030513, end: 20030518
  2. CELEBREX [Suspect]
     Indication: BACK PAIN
     Route: 048
     Dates: start: 19990506, end: 20030513

REACTIONS (2)
  - DEPRESSION [None]
  - STEVENS-JOHNSON SYNDROME [None]
